FAERS Safety Report 21881081 (Version 1)
Quarter: 2023Q1

REPORT INFORMATION
  Report Type: Spontaneous
  Country: AU (occurrence: AU)
  Receive Date: 20230118
  Receipt Date: 20230118
  Transmission Date: 20230418
  Serious: Yes (Other)
  Sender: FDA-Public Use
  Company Number: AU-BAUSCHBL-2023BNL000322

PATIENT
  Age: 72 Year
  Sex: Female

DRUGS (7)
  1. PREDNISOLONE [Suspect]
     Active Substance: PREDNISOLONE
     Indication: Product used for unknown indication
     Route: 065
  2. HYDROXYCHLOROQUINE [Suspect]
     Active Substance: HYDROXYCHLOROQUINE
     Indication: Product used for unknown indication
     Route: 065
  3. METHOTREXATE [Suspect]
     Active Substance: METHOTREXATE
     Indication: Product used for unknown indication
     Route: 065
  4. TRIMETHOPRIM [Suspect]
     Active Substance: TRIMETHOPRIM
     Indication: Product used for unknown indication
     Route: 065
  5. ASPIRIN [Concomitant]
     Active Substance: ASPIRIN
     Indication: Product used for unknown indication
  6. ATORVASTATIN [Concomitant]
     Active Substance: ATORVASTATIN
     Indication: Product used for unknown indication
  7. FOLIC ACID [Concomitant]
     Active Substance: FOLIC ACID
     Indication: Product used for unknown indication

REACTIONS (16)
  - Acute kidney injury [Unknown]
  - Abdominal pain [Unknown]
  - Anaemia [Unknown]
  - Diverticulitis [Unknown]
  - Fatigue [Unknown]
  - Herpes simplex viraemia [Unknown]
  - Mucosal inflammation [Unknown]
  - Myelodysplastic syndrome [Unknown]
  - Myelosuppression [Unknown]
  - Neutropenia [Unknown]
  - Oral pain [Unknown]
  - Oropharyngeal pain [Unknown]
  - Pancytopenia [Unknown]
  - Rash erythematous [Unknown]
  - Skin ulcer [Unknown]
  - Thrombocytopenia [Unknown]
